FAERS Safety Report 8232990-3 (Version None)
Quarter: 2012Q1

REPORT INFORMATION
  Report Type: 
  Country: None (occurrence: None)
  Receive Date: 20120326
  Receipt Date: 20120316
  Transmission Date: 20120608
  Serious: Yes (Other)
  Sender: FDA-Public Use
  Company Number: US-BIOGENIDEC-2010BI035168

PATIENT
  Age: 36 Year
  Sex: Female

DRUGS (4)
  1. TYSABRI [Suspect]
     Route: 042
     Dates: start: 20110201
  2. LANTUS [Concomitant]
     Dates: start: 20101222
  3. TYSABRI [Suspect]
     Indication: MULTIPLE SCLEROSIS
     Route: 042
     Dates: start: 20091130, end: 20100716
  4. PROZAC [Concomitant]
     Dates: start: 20081113

REACTIONS (2)
  - PREGNANCY [None]
  - GESTATIONAL DIABETES [None]
